FAERS Safety Report 9736694 (Version 1)
Quarter: 2013Q4

REPORT INFORMATION
  Report Type: Spontaneous
  Country: US (occurrence: US)
  Receive Date: 20131206
  Receipt Date: 20131206
  Transmission Date: 20140711
  Serious: No
  Sender: FDA-Public Use
  Company Number: US-GILEAD-2009-0023566

PATIENT
  Age: 65 Year
  Sex: Female

DRUGS (12)
  1. LETAIRIS [Suspect]
     Indication: PULMONARY ARTERIAL HYPERTENSION
     Route: 048
  2. LETAIRIS [Suspect]
     Route: 048
  3. VIAGRA [Concomitant]
  4. ALBUTEROL [Concomitant]
  5. POTASSIUM [Concomitant]
  6. VERAPAMIL [Concomitant]
  7. FUROSEMIDE [Concomitant]
  8. DETROL [Concomitant]
  9. SINGULAIR [Concomitant]
  10. AVAPRO [Concomitant]
  11. NASACORT [Concomitant]
  12. MULTIVITAMINS [Concomitant]

REACTIONS (1)
  - Fluid retention [Recovered/Resolved]
